FAERS Safety Report 8409344-X (Version None)
Quarter: 2012Q2

REPORT INFORMATION
  Report Type: 
  Country: None (occurrence: None)
  Receive Date: 20120605
  Receipt Date: 20120529
  Transmission Date: 20120825
  Serious: No
  Sender: FDA-Public Use
  Company Number: US-BIOGENIDEC-2011BI042369

PATIENT
  Age: 30 Year
  Sex: Female

DRUGS (1)
  1. TYSABRI [Suspect]
     Indication: MULTIPLE SCLEROSIS
     Route: 042
     Dates: start: 20110623, end: 20120201

REACTIONS (5)
  - OROPHARYNGEAL PAIN [None]
  - MULTIPLE ALLERGIES [None]
  - INFLUENZA LIKE ILLNESS [None]
  - PAIN [None]
  - NASOPHARYNGITIS [None]
